FAERS Safety Report 7826488-1 (Version None)
Quarter: 2011Q4

REPORT INFORMATION
  Report Type: 
  Country: None (occurrence: None)
  Receive Date: 20111011
  Receipt Date: 20110930
  Transmission Date: 20120403
  Serious: Yes (Other)
  Sender: FDA-Public Use
  Company Number: AEUSA201100264

PATIENT
  Age: 58 Year
  Sex: Female

DRUGS (9)
  1. AMLODIPINE [Concomitant]
  2. CALCIUM W/VITAMIN D NOS [Concomitant]
  3. ALBUTEROL [Concomitant]
  4. LOVENOX [Concomitant]
  5. MULTI-VITAMINS [Concomitant]
  6. THROMBATE III [Suspect]
     Indication: ANTITHROMBIN III DEFICIENCY
     Dosage: 1000 IU;QW;IV
     Route: 042
     Dates: start: 20110601
  7. NASONEX [Concomitant]
  8. TOPROL-XL [Concomitant]
  9. ACTONEL [Concomitant]

REACTIONS (2)
  - NERVOUS SYSTEM DISORDER [None]
  - VISUAL IMPAIRMENT [None]
